FAERS Safety Report 8036449-8 (Version None)
Quarter: 2012Q1

REPORT INFORMATION
  Report Type: 
  Country: None (occurrence: None)
  Receive Date: 20120111
  Receipt Date: 20120105
  Transmission Date: 20120608
  Serious: Yes (Death)
  Sender: FDA-Public Use
  Company Number: US-PFIZER INC-2011313912

PATIENT
  Age: 37 Year
  Sex: Female

DRUGS (5)
  1. DILTIAZEM HCL [Suspect]
  2. MEPROBAMATE [Suspect]
  3. ACETAMINOPHEN AND HYDROCODONE BITARTRATE [Suspect]
  4. QUETIAPINE [Suspect]
  5. ALPRAZOLAM [Suspect]

REACTIONS (3)
  - DRUG ABUSE [None]
  - CARDIAC ARREST [None]
  - RESPIRATORY ARREST [None]
